APPROVED DRUG PRODUCT: SEVOFLURANE
Active Ingredient: SEVOFLURANE
Strength: 100%
Dosage Form/Route: LIQUID;INHALATION
Application: A203793 | Product #001 | TE Code: AN
Applicant: SHANGHAI HENGRUI PHARMACEUTICAL CO LTD
Approved: Nov 3, 2015 | RLD: No | RS: No | Type: RX